FAERS Safety Report 9311625 (Version 1)
Quarter: 2013Q2

REPORT INFORMATION
  Report Type: Report from Study
  Country: US (occurrence: US)
  Receive Date: 20130528
  Receipt Date: 20130528
  Transmission Date: 20140414
  Serious: No
  Sender: FDA-Public Use
  Company Number: US-ABBOTT-12P-163-0998946-00

PATIENT
  Age: 48 Year
  Sex: Female
  Weight: 77.18 kg

DRUGS (9)
  1. ZEMPLAR [Suspect]
     Indication: RENAL FAILURE CHRONIC
     Dates: start: 20121009
  2. METOPROLOL [Concomitant]
     Indication: HYPERTENSION
  3. NORVASC [Concomitant]
     Indication: HYPERTENSION
  4. PHENERGAN [Concomitant]
     Indication: IMPAIRED GASTRIC EMPTYING
  5. REGLAN [Concomitant]
     Indication: IMPAIRED GASTRIC EMPTYING
  6. NOVOLOG [Concomitant]
     Indication: TYPE 1 DIABETES MELLITUS
  7. GLUCAGON [Concomitant]
     Indication: BLOOD GLUCOSE DECREASED
  8. FERROUS SULFATE [Concomitant]
     Indication: BLOOD IRON DECREASED
  9. LISINOPRIL [Concomitant]
     Indication: HYPERTENSION

REACTIONS (2)
  - Joint swelling [Recovering/Resolving]
  - Hypertension [Not Recovered/Not Resolved]
